FAERS Safety Report 17460711 (Version 1)
Quarter: 2020Q1

REPORT INFORMATION
  Report Type: Spontaneous
  Country: US (occurrence: US)
  Receive Date: 20200225
  Receipt Date: 20200225
  Transmission Date: 20200409
  Serious: Yes (Hospitalization)
  Sender: FDA-Public Use
  Company Number: None

PATIENT
  Age: 66 Year
  Sex: Female

DRUGS (8)
  1. YERVOY [Concomitant]
     Active Substance: IPILIMUMAB
  2. SIMVASTATIN. [Concomitant]
     Active Substance: SIMVASTATIN
  3. METHIMAZOLE. [Concomitant]
     Active Substance: METHIMAZOLE
  4. OMEPRAZOLE. [Concomitant]
     Active Substance: OMEPRAZOLE
  5. OLMESA MEDOX [Concomitant]
  6. GLIMEPIRIDE. [Concomitant]
     Active Substance: GLIMEPIRIDE
  7. METFORMIN [Concomitant]
     Active Substance: METFORMIN HYDROCHLORIDE
  8. OPDIVO [Suspect]
     Active Substance: NIVOLUMAB
     Dosage: ?          OTHER FREQUENCY:EVERY 3 WEEKS;?
     Route: 042
     Dates: start: 20191113

REACTIONS (1)
  - Hospitalisation [None]

NARRATIVE: CASE EVENT DATE: 20200129
